FAERS Safety Report 10432639 (Version 1)
Quarter: 2014Q3

REPORT INFORMATION
  Report Type: Spontaneous
  Country: FR (occurrence: FR)
  Receive Date: 20140905
  Receipt Date: 20140905
  Transmission Date: 20150326
  Serious: Yes (Hospitalization)
  Sender: FDA-Public Use
  Company Number: FR-ASTRAZENECA-2014SE65517

PATIENT
  Age: 82 Year
  Sex: Female

DRUGS (7)
  1. TEMERIT [Suspect]
     Active Substance: NEBIVOLOL
     Route: 048
     Dates: start: 20140828
  2. TAZOCILLINE [Suspect]
     Active Substance: PIPERACILLIN SODIUM\TAZOBACTAM SODIUM
     Dosage: 4G/500MG TWO TIMES DAILY
     Route: 042
     Dates: start: 20140814
  3. TEMESTA [Suspect]
     Active Substance: LORAZEPAM
     Route: 048
  4. RAMIPRIL. [Suspect]
     Active Substance: RAMIPRIL
     Route: 048
     Dates: start: 20140811, end: 20140814
  5. PLAVIX [Suspect]
     Active Substance: CLOPIDOGREL BISULFATE
     Route: 048
     Dates: start: 20140811
  6. INEXIUM [Suspect]
     Active Substance: ESOMEPRAZOLE
     Route: 048
  7. TAZOCILLINE [Suspect]
     Active Substance: PIPERACILLIN SODIUM\TAZOBACTAM SODIUM
     Dosage: 4G/500MG THREE TIMES DAILY
     Route: 042
     Dates: start: 20140812, end: 20140814

REACTIONS (1)
  - Blood creatine increased [Recovered/Resolved]

NARRATIVE: CASE EVENT DATE: 20140814
